FAERS Safety Report 12837182 (Version 1)
Quarter: 2016Q4

REPORT INFORMATION
  Report Type: Spontaneous
  Country: US (occurrence: US)
  Receive Date: 20161007
  Receipt Date: 20161007
  Transmission Date: 20170207
  Serious: Yes (Disabling)
  Sender: FDA-Public Use
  Company Number: None

PATIENT
  Age: 54 Year
  Sex: Female
  Weight: 76.5 kg

DRUGS (1)
  1. HYOSCYAMINE. [Suspect]
     Active Substance: HYOSCYAMINE
     Indication: ABDOMINAL DISCOMFORT
     Dosage: OTHER AS NEEDED ORAL  90 TABLETAS
     Route: 048
     Dates: start: 20160411, end: 20160921

REACTIONS (12)
  - Abdominal distension [None]
  - Restless legs syndrome [None]
  - Nausea [None]
  - Musculoskeletal pain [None]
  - Insomnia [None]
  - Palpitations [None]
  - Muscle spasms [None]
  - Product quality issue [None]
  - Restlessness [None]
  - Abdominal pain upper [None]
  - Flatulence [None]
  - Blood test abnormal [None]

NARRATIVE: CASE EVENT DATE: 20160921
